FAERS Safety Report 5384252-X (Version None)
Quarter: 2007Q3

REPORT INFORMATION
  Report Type: 
  Country: None (occurrence: None)
  Receive Date: 20070710
  Receipt Date: 20060810
  Transmission Date: 20080115
  Serious: Yes (Hospitalization)
  Sender: FDA-Public Use
  Company Number: 2006-01006

PATIENT
  Age: 70 Year
  Sex: Female
  Weight: 48 kg

DRUGS (4)
  1. VELCADE [Suspect]
     Indication: MULTIPLE MYELOMA
     Dosage: 0.70 MG/M2, INTRAVENOUS, 300.00 MG/M2, INTRAVENOUS
     Route: 042
     Dates: start: 20060320, end: 20060410
  2. PXD101 () [Suspect]
     Indication: MULTIPLE MYELOMA
     Dosage: 300.00 MG/M2, INTRAVENOUS
     Route: 042
     Dates: start: 20060320, end: 20060412
  3. ZOFRAN [Concomitant]
  4. ATIVAN [Concomitant]

REACTIONS (2)
  - HAEMORRHAGE [None]
  - THROMBOCYTOPENIA [None]
